FAERS Safety Report 6704537-1 (Version None)
Quarter: 2010Q2

REPORT INFORMATION
  Report Type: 
  Country: None (occurrence: None)
  Receive Date: 20100430
  Receipt Date: 20100422
  Transmission Date: 20101027
  Serious: Yes (Other)
  Sender: FDA-Public Use
  Company Number: PHHY2010HU15006

PATIENT

DRUGS (1)
  1. ACLASTA [Suspect]
     Dosage: 5 MG
     Dates: start: 20100308

REACTIONS (3)
  - CHEST PAIN [None]
  - DYSPNOEA [None]
  - HYPOCALCAEMIA [None]
